FAERS Safety Report 14486042 (Version 2)
Quarter: 2018Q1

REPORT INFORMATION
  Report Type: Spontaneous
  Country: AT (occurrence: AT)
  Receive Date: 20180205
  Receipt Date: 20180316
  Transmission Date: 20180509
  Serious: Yes (Hospitalization)
  Sender: FDA-Public Use
  Company Number: AT-JNJFOC-20180138812

PATIENT
  Sex: Female

DRUGS (1)
  1. TREVICTA [Suspect]
     Active Substance: PALIPERIDONE PALMITATE
     Indication: PRODUCT USED FOR UNKNOWN INDICATION
     Route: 030
     Dates: start: 20171003

REACTIONS (2)
  - Loss of personal independence in daily activities [Recovering/Resolving]
  - Disturbance in social behaviour [Recovering/Resolving]

NARRATIVE: CASE EVENT DATE: 2017
